FAERS Safety Report 18263002 (Version 1)
Quarter: 2020Q3

REPORT INFORMATION
  Report Type: Spontaneous
  Country: US (occurrence: US)
  Receive Date: 20200914
  Receipt Date: 20200914
  Transmission Date: 20201103
  Serious: Yes (Life-Threatening)
  Sender: FDA-Public Use
  Company Number: None

PATIENT
  Age: 60 Year
  Sex: Male
  Weight: 65.25 kg

DRUGS (4)
  1. OTEZLA [Suspect]
     Active Substance: APREMILAST
     Indication: PSORIATIC ARTHROPATHY
     Dosage: ?          QUANTITY:60 TABLET(S);?
     Route: 048
     Dates: start: 20200407, end: 20200828
  2. CLOBESTOSOL CREME [Concomitant]
  3. LISINOPRIL. [Concomitant]
     Active Substance: LISINOPRIL
  4. MELOXICAM. [Concomitant]
     Active Substance: MELOXICAM

REACTIONS (13)
  - Weight decreased [None]
  - Piloerection [None]
  - Skin infection [None]
  - Ear infection [None]
  - Depressed mood [None]
  - Folliculitis [None]
  - Blood pressure diastolic increased [None]
  - Miliaria [None]
  - Skin erosion [None]
  - Dry skin [None]
  - Hypertension [None]
  - Abdominal discomfort [None]
  - Erythema [None]

NARRATIVE: CASE EVENT DATE: 20200907
